FAERS Safety Report 12470931 (Version 1)
Quarter: 2016Q2

REPORT INFORMATION
  Report Type: Spontaneous
  Country: US (occurrence: None)
  Receive Date: 20160615
  Receipt Date: 20160615
  Transmission Date: 20160815
  Serious: No
  Sender: FDA-Public Use
  Company Number: None

PATIENT

DRUGS (2)
  1. CEFTRIAXONE SODIUM CEFTRIAXONE [Suspect]
     Active Substance: CEFTRIAXONE SODIUM
  2. LIDOCAINE HCL [Suspect]
     Active Substance: LIDOCAINE HYDROCHLORIDE

REACTIONS (1)
  - Drug dispensing error [None]
